FAERS Safety Report 5679558-0 (Version None)
Quarter: 2008Q1

REPORT INFORMATION
  Report Type: 
  Country: None (occurrence: None)
  Receive Date: 20080324
  Receipt Date: 20080313
  Transmission Date: 20080703
  Serious: Yes (Hospitalization)
  Sender: FDA-Public Use
  Company Number: US022058

PATIENT
  Sex: Female

DRUGS (5)
  1. ACTIQ [Suspect]
     Indication: PAIN
     Dosage: 1200 UG   BUCCAL
     Route: 002
     Dates: start: 20060101
  2. ACTIQ [Suspect]
     Indication: PAIN
     Dosage: 1600 UG  BUCCAL
     Route: 002
  3. ACTIQ [Suspect]
     Indication: PAIN
     Dosage: 600 UG BUCCAL
     Route: 002
  4. OXYCONTIN [Concomitant]
  5. OXYCODONE HCL [Concomitant]

REACTIONS (3)
  - ANGER [None]
  - DEPRESSION [None]
  - DRUG DEPENDENCE [None]
